FAERS Safety Report 5155836-9 (Version None)
Quarter: 2006Q4

REPORT INFORMATION
  Report Type: 
  Country: None (occurrence: None)
  Receive Date: 20061120
  Receipt Date: 20061120
  Transmission Date: 20070319
  Serious: No
  Sender: FDA-Public Use
  Company Number: None

PATIENT
  Age: 38 Year
  Sex: Female
  Weight: 113.3993 kg

DRUGS (1)
  1. OLANZAPINE [Suspect]
     Dosage: 20 MG  DAILY  PO
     Route: 048

REACTIONS (1)
  - OEDEMA PERIPHERAL [None]
